FAERS Safety Report 6179071-0 (Version None)
Quarter: 2009Q2

REPORT INFORMATION
  Report Type: 
  Country: None (occurrence: None)
  Receive Date: 20090505
  Receipt Date: 20090427
  Transmission Date: 20091009
  Serious: Yes (Death, Other)
  Sender: FDA-Public Use
  Company Number: PHHY2008CA29197

PATIENT
  Sex: Female

DRUGS (7)
  1. DIOVAN T30230++HY [Suspect]
     Indication: HYPERTENSION
     Dosage: UNK
     Route: 048
     Dates: start: 20071130, end: 20080414
  2. VITAMIN D [Concomitant]
     Dosage: 1500 IU, UNK
     Dates: start: 20080318
  3. CALCIUM CITRATE [Concomitant]
     Dosage: 1500 MG
     Dates: start: 20080318
  4. ACTONEL [Concomitant]
     Dosage: 35 MG
     Dates: start: 20080318
  5. ARTHROTEC [Concomitant]
  6. DICLOFENAC SODIUM [Concomitant]
  7. HCT ^CT-ARZNEIMITTEL^ [Concomitant]

REACTIONS (20)
  - ACUTE LEUKAEMIA [None]
  - AKINESIA [None]
  - BENIGN NEOPLASM OF THYROID GLAND [None]
  - CARDIOMYOPATHY [None]
  - CHEST DISCOMFORT [None]
  - CHEST PAIN [None]
  - DYSPNOEA [None]
  - ELECTROCARDIOGRAM ST SEGMENT ELEVATION [None]
  - HAEMORRHAGIC CYST [None]
  - HYPERCALCAEMIA [None]
  - HYPERPARATHYROIDISM [None]
  - INFLAMMATION [None]
  - LEUKOCYTOSIS [None]
  - LIVER PALPABLE SUBCOSTAL [None]
  - MYOCARDIAL ISCHAEMIA [None]
  - OEDEMA PERIPHERAL [None]
  - PARATHYROIDECTOMY [None]
  - PLATELET COUNT DECREASED [None]
  - PULMONARY EMBOLISM [None]
  - TROPONIN INCREASED [None]
